FAERS Safety Report 9687175 (Version 1)
Quarter: 2013Q4

REPORT INFORMATION
  Report Type: Report from Study
  Country: TN (occurrence: TN)
  Receive Date: 20131113
  Receipt Date: 20131113
  Transmission Date: 20140711
  Serious: Yes (Other)
  Sender: FDA-Public Use
  Company Number: TN-US-EMD SERONO, INC.-7247799

PATIENT
  Age: 0 None
  Sex: Male

DRUGS (1)
  1. REBIF [Suspect]
     Indication: MULTIPLE SCLEROSIS
     Route: 064

REACTIONS (3)
  - Foetal distress syndrome [Recovered/Resolved]
  - Normal newborn [Recovered/Resolved]
  - Foetal exposure during pregnancy [Recovered/Resolved]
